FAERS Safety Report 24731917 (Version 1)
Quarter: 2024Q4

REPORT INFORMATION
  Report Type: Report from Study
  Country: DE (occurrence: DE)
  Receive Date: 20241213
  Receipt Date: 20241213
  Transmission Date: 20250115
  Serious: Yes (Other)
  Sender: PFIZER
  Company Number: DE-ROCHE-3079183

PATIENT
  Age: 43 Year
  Sex: Female

DRUGS (9)
  1. RITUXIMAB [Suspect]
     Active Substance: RITUXIMAB
     Indication: Neuromyelitis optica spectrum disorder
     Dosage: 500 MG, EVERY 14 DAYS (182 DAYS BASED ON BODY WEIGHT)
     Route: 042
     Dates: start: 20220412, end: 20220412
  2. RITUXIMAB [Suspect]
     Active Substance: RITUXIMAB
     Dosage: 500 MG, EVERY 14 DAYS
     Route: 042
     Dates: start: 20220426, end: 20220426
  3. RITUXIMAB [Suspect]
     Active Substance: RITUXIMAB
     Dosage: 1000 MG, EVERY 6 MONTHS
     Route: 042
     Dates: start: 20221026, end: 20221026
  4. OCREVUS [Suspect]
     Active Substance: OCRELIZUMAB
     Indication: Neuromyelitis optica spectrum disorder
     Dosage: 600 MG, EVERY 197 DAYS
     Route: 042
     Dates: start: 20220412
  5. RITUXIMAB [Suspect]
     Active Substance: RITUXIMAB
     Indication: Neuromyelitis optica spectrum disorder
     Dosage: UNK
  6. CHOLECALCIFEROL [Concomitant]
     Active Substance: CHOLECALCIFEROL
     Dosage: 20000 IU, WEEKLY
  7. MOVICOL [Concomitant]
     Active Substance: POLYETHYLENE GLYCOL 3350\POTASSIUM CHLORIDE\SODIUM BICARBONATE\SODIUM CHLORIDE
     Dosage: PRN
  8. LEVOTHYROXINE [Concomitant]
     Active Substance: LEVOTHYROXINE
     Dosage: 125 UG, DAILY
  9. ACETAMINOPHEN [Concomitant]
     Active Substance: ACETAMINOPHEN
     Dosage: UNK

REACTIONS (20)
  - Hypertensive crisis [Recovered/Resolved]
  - Wrist fracture [Recovered/Resolved]
  - Shoulder fracture [Recovered/Resolved]
  - Pyrexia [Recovered/Resolved]
  - Nasopharyngitis [Recovered/Resolved]
  - Asthenia [Recovered/Resolved]
  - Liver function test increased [Recovered/Resolved]
  - Fatigue [Recovered/Resolved]
  - Alopecia [Recovered/Resolved]
  - Cough [Recovered/Resolved]
  - Nausea [Recovered/Resolved]
  - Infusion related reaction [Unknown]
  - Feeling cold [Recovered/Resolved]
  - Fall [Unknown]
  - Vascular pain [Recovered/Resolved]
  - Eosinophil count increased [Unknown]
  - C-reactive protein increased [Recovered/Resolved]
  - White blood cell disorder [Recovered/Resolved]
  - Off label use [Unknown]
  - Paravenous drug administration [Unknown]

NARRATIVE: CASE EVENT DATE: 20220412
